FAERS Safety Report 4722586-X (Version None)
Quarter: 2005Q3

REPORT INFORMATION
  Report Type: 
  Country: None (occurrence: None)
  Receive Date: 20050720
  Receipt Date: 20050712
  Transmission Date: 20060218
  Serious: Yes (Hospitalization)
  Sender: FDA-Public Use
  Company Number: 2005100106

PATIENT
  Sex: Female

DRUGS (6)
  1. ALDACTONE [Suspect]
     Indication: RENAL FAILURE
     Dosage: 200 MG, ORAL
     Route: 048
     Dates: start: 20050606
  2. ALDALIX (SPIRONOLACTONE, FUROSEMIDE) [Suspect]
     Indication: ILL-DEFINED DISORDER
     Dosage: 60 MG, ORAL
     Route: 048
     Dates: start: 20050610
  3. BECOZYM (VITAMIN B NOS) [Concomitant]
  4. BENERVA (THIAMINE HYDROCHLORIDE) [Concomitant]
  5. REDOXON (ASCORBIC ACID) [Concomitant]
  6. KANAVIT (PHYTOMENADIONE) [Concomitant]

REACTIONS (1)
  - THROMBOCYTOPENIA [None]
